FAERS Safety Report 12842259 (Version 1)
Quarter: 2016Q4

REPORT INFORMATION
  Report Type: Report from Study
  Country: US (occurrence: US)
  Receive Date: 20161013
  Receipt Date: 20161013
  Transmission Date: 20170207
  Serious: Yes (Life-Threatening)
  Sender: FDA-Public Use
  Company Number: US-ROCHE-1840405

PATIENT
  Age: 74 Year
  Sex: Female

DRUGS (2)
  1. ACTEMRA [Suspect]
     Active Substance: TOCILIZUMAB
     Indication: RHEUMATOID ARTHRITIS
     Dosage: ALSO RECEIVED ON 02/SEP/2016
     Route: 042
  2. ZOFRAN [Concomitant]
     Active Substance: ONDANSETRON HYDROCHLORIDE
     Dosage: PRN
     Route: 042

REACTIONS (10)
  - Headache [Unknown]
  - Lethargy [Unknown]
  - Vomiting [Unknown]
  - Breath sounds abnormal [Unknown]
  - Confusional state [Unknown]
  - Haemorrhagic stroke [Recovering/Resolving]
  - Nausea [Unknown]
  - Somnolence [Unknown]
  - Hyperhidrosis [Unknown]
  - Back pain [Unknown]

NARRATIVE: CASE EVENT DATE: 20160902
